FAERS Safety Report 6963336-6 (Version None)
Quarter: 2010Q3

REPORT INFORMATION
  Report Type: 
  Country: None (occurrence: None)
  Receive Date: 20100902
  Receipt Date: 20100825
  Transmission Date: 20110219
  Serious: Yes (Hospitalization)
  Sender: FDA-Public Use
  Company Number: DE-MPIJNJ-2010-04553

PATIENT

DRUGS (3)
  1. VELCADE [Suspect]
     Indication: MULTIPLE MYELOMA
     Dosage: 1.88 MG, UNK
     Route: 042
     Dates: start: 20100316, end: 20100816
  2. MELPHALAN [Concomitant]
     Dosage: 16 MG, UNK
     Dates: start: 20100316, end: 20100805
  3. PREDNISONE [Concomitant]
     Dosage: 100 MG, UNK
     Dates: start: 20100316, end: 20100808

REACTIONS (1)
  - CHEST DISCOMFORT [None]
